FAERS Safety Report 9881353 (Version 1)
Quarter: 2014Q1

REPORT INFORMATION
  Report Type: Report from Study
  Country: BR (occurrence: BR)
  Receive Date: 20140207
  Receipt Date: 20140207
  Transmission Date: 20141002
  Serious: Yes (Death, Other)
  Sender: FDA-Public Use
  Company Number: PHHY2014BR013820

PATIENT
  Sex: Female
  Weight: 60 kg

DRUGS (2)
  1. DIOVAN [Suspect]
     Indication: HYPERTENSION
     Dosage: 2 DF, DAILY
     Route: 048
     Dates: start: 2001
  2. VITALUX PLUS [Suspect]
     Indication: MACULAR DEGENERATION
     Dosage: 1 DF, DAILY
     Route: 048

REACTIONS (4)
  - Cardiac failure [Fatal]
  - Renal failure [Fatal]
  - Femur fracture [Fatal]
  - Abscess neck [Unknown]
